FAERS Safety Report 9758690 (Version 1)
Quarter: 2013Q4

REPORT INFORMATION
  Report Type: Spontaneous
  Country: US (occurrence: None)
  Receive Date: 20131216
  Receipt Date: 20131216
  Transmission Date: 20140711
  Serious: Yes (Other)
  Sender: FDA-Public Use
  Company Number: RB-51673-2013

PATIENT
  Age: 35 Year
  Sex: Female

DRUGS (4)
  1. BUPRENORPHINE [Suspect]
     Indication: DRUG DEPENDENCE
     Dosage: (16 MG SUBLINGUAL) , (24 MG SUBLINGUAL)
  2. SUBOXONE [Suspect]
     Indication: DRUG DEPENDENCE
     Dosage: (DOSING TAILS UNSPECIFIED SUBLINGUAL)?111?FILM, DOSING DETAILS UNSPECIFIED UNKNOWN)
  3. SUBOXONE [Suspect]
     Indication: DRUG DEPENDENCE
     Dosage: (SUBOXONE
  4. SUBUTEX [Suspect]
     Indication: DRUG DEPENDENCE
     Dosage: (DOSING DETAILS UNSPECIFIED UNKNOWN)

REACTIONS (5)
  - Depression [None]
  - Fall [None]
  - Joint swelling [None]
  - Pain [None]
  - Contusion [None]
